FAERS Safety Report 7812344-1 (Version None)
Quarter: 2011Q4

REPORT INFORMATION
  Report Type: 
  Country: None (occurrence: None)
  Receive Date: 20111013
  Receipt Date: 20111007
  Transmission Date: 20120403
  Serious: Yes (Disabling)
  Sender: FDA-Public Use
  Company Number: US-GLAXOSMITHKLINE-A0948243A

PATIENT
  Age: 54 Year
  Sex: Female

DRUGS (4)
  1. VOTRIENT [Suspect]
     Indication: RENAL CELL CARCINOMA
     Dosage: 600MG PER DAY
     Route: 048
     Dates: start: 20091001
  2. IBUPROFEN (ADVIL) [Concomitant]
  3. NAPROXEN (ALEVE) [Concomitant]
  4. OXYCODONE HCL [Concomitant]

REACTIONS (1)
  - BONE PAIN [None]
